FAERS Safety Report 8380578-6 (Version None)
Quarter: 2012Q1

REPORT INFORMATION
  Report Type: 
  Country: None (occurrence: None)
  Receive Date: 20120323
  Receipt Date: 20110405
  Transmission Date: 20120608
  Serious: Yes (Other)
  Sender: FDA-Public Use
  Company Number: 163-21880-11040557

PATIENT
  Age: 72 Year
  Sex: Female

DRUGS (5)
  1. EXCEDRIN (EXCEDRIN / USA) [Concomitant]
  2. AMBIEN [Concomitant]
  3. NAPROXEN (ALEVE) [Concomitant]
  4. REVLIMID [Suspect]
     Indication: MULTIPLE MYELOMA
     Dosage: 25 MG, 1 IN 1 D, PO
     Route: 048
     Dates: start: 20110318, end: 20110329
  5. PRINIVIL [Concomitant]

REACTIONS (3)
  - EPISTAXIS [None]
  - PLATELET COUNT DECREASED [None]
  - WHITE BLOOD CELL COUNT DECREASED [None]
